FAERS Safety Report 5798257-8 (Version None)
Quarter: 2008Q3

REPORT INFORMATION
  Report Type: 
  Country: None (occurrence: None)
  Receive Date: 20080702
  Receipt Date: 20080626
  Transmission Date: 20090109
  Serious: Yes (Hospitalization, Other)
  Sender: FDA-Public Use
  Company Number: US-JNJFOC-20080502108

PATIENT
  Sex: Male
  Weight: 107.05 kg

DRUGS (3)
  1. LEVAQUIN [Suspect]
     Indication: LOWER RESPIRATORY TRACT INFECTION
     Route: 048
  2. PREVACID [Concomitant]
     Indication: GASTROOESOPHAGEAL REFLUX DISEASE
  3. ACCUPRIL [Concomitant]
     Indication: HYPERTENSION

REACTIONS (2)
  - CARDIAC FAILURE [None]
  - CONVULSION [None]
